FAERS Safety Report 14962447 (Version 1)
Quarter: 2018Q2

REPORT INFORMATION
  Report Type: Spontaneous
  Country: US (occurrence: US)
  Receive Date: 20180601
  Receipt Date: 20180601
  Transmission Date: 20180711
  Serious: No
  Sender: FDA-Public Use
  Company Number: US-AUROBINDO-AUR-APU-2018-016720

PATIENT
  Sex: Male

DRUGS (1)
  1. HYDROCODONE BITARTRATE AND ACETAMINOPHEN TABLETS USP 7.5 MG/325 MG [Suspect]
     Active Substance: ACETAMINOPHEN\HYDROCODONE BITARTRATE
     Indication: PAIN
     Dosage: PATIENT HAS TAKEN 30 TABLETS IN THE DURATION OF COURSE AND STATED THAT HE IS TAKING LOT AS HE SUPPOS
     Route: 065
     Dates: start: 20180318

REACTIONS (2)
  - Drug ineffective [Unknown]
  - Intentional product use issue [Unknown]
